FAERS Safety Report 5921727-6 (Version None)
Quarter: 2008Q4

REPORT INFORMATION
  Report Type: 
  Country: None (occurrence: None)
  Receive Date: 20081016
  Receipt Date: 20081016
  Transmission Date: 20090506
  Serious: Yes (Other)
  Sender: FDA-Public Use
  Company Number: None

PATIENT
  Age: 56 Year
  Sex: Male
  Weight: 108.8633 kg

DRUGS (1)
  1. CELLCEPT [Suspect]
     Dosage: 1000 TWICE A DAY PO`
     Route: 048
     Dates: start: 20040501, end: 20081015

REACTIONS (1)
  - BLOOD GLUCOSE INCREASED [None]
